FAERS Safety Report 13616303 (Version 1)
Quarter: 2017Q2

REPORT INFORMATION
  Report Type: Spontaneous
  Country: US (occurrence: US)
  Receive Date: 20170605
  Receipt Date: 20170605
  Transmission Date: 20170830
  Serious: Yes (Hospitalization)
  Sender: FDA-Public Use
  Company Number: None

PATIENT
  Age: 65 Year
  Sex: Male
  Weight: 88.7 kg

DRUGS (2)
  1. LIDOCAINE. [Suspect]
     Active Substance: LIDOCAINE
     Indication: CHEST PAIN
     Dates: start: 20120602, end: 20120602
  2. LIDOCAINE. [Suspect]
     Active Substance: LIDOCAINE
     Indication: GASTROOESOPHAGEAL REFLUX DISEASE
     Dates: start: 20120602, end: 20120602

REACTIONS (4)
  - Hypotension [None]
  - Hyperhidrosis [None]
  - Bradycardia [None]
  - Confusional state [None]

NARRATIVE: CASE EVENT DATE: 20120602
